FAERS Safety Report 5226438-0 (Version None)
Quarter: 2007Q1

REPORT INFORMATION
  Report Type: 
  Country: None (occurrence: None)
  Receive Date: 20070201
  Receipt Date: 20070122
  Transmission Date: 20070707
  Serious: Yes (Other)
  Sender: FDA-Public Use
  Company Number: US-PFIZER INC-2007006642

PATIENT
  Sex: Male
  Weight: 74.8 kg

DRUGS (5)
  1. LIPITOR [Suspect]
     Indication: BLOOD CHOLESTEROL INCREASED
     Dates: start: 20060401, end: 20070101
  2. LIPITOR [Suspect]
     Indication: LOW DENSITY LIPOPROTEIN INCREASED
  3. ASPIRIN [Concomitant]
  4. VITAMIN CAP [Concomitant]
  5. HERBAL PREPARATION [Concomitant]

REACTIONS (2)
  - ARRHYTHMIA [None]
  - VENTRICULAR TACHYCARDIA [None]
